FAERS Safety Report 10863213 (Version 1)
Quarter: 2015Q1

REPORT INFORMATION
  Report Type: Spontaneous
  Country: US (occurrence: US)
  Receive Date: 20150224
  Receipt Date: 20150224
  Transmission Date: 20150721
  Serious: No
  Sender: FDA-Public Use
  Company Number: US-BAUSCH-SYM-2014-17624

PATIENT
  Age: 68 Year
  Sex: Male
  Weight: 143.01 kg

DRUGS (2)
  1. PROVENTIL [Concomitant]
     Active Substance: ALBUTEROL
     Indication: PRODUCT USED FOR UNKNOWN INDICATION
  2. TARGRETIN [Suspect]
     Active Substance: BEXAROTENE
     Indication: T-CELL LYMPHOMA
     Dosage: 6 CAPSULES ONCE DAILY
     Route: 048
     Dates: start: 2013

REACTIONS (3)
  - Product quality issue [Unknown]
  - Product taste abnormal [Unknown]
  - Product odour abnormal [Unknown]

NARRATIVE: CASE EVENT DATE: 20140213
